FAERS Safety Report 7359795-X (Version None)
Quarter: 2011Q1

REPORT INFORMATION
  Report Type: 
  Country: None (occurrence: None)
  Receive Date: 20110317
  Receipt Date: 20110315
  Transmission Date: 20110831
  Serious: Yes (Other)
  Sender: FDA-Public Use
  Company Number: US-PFIZER INC-2011057500

PATIENT
  Sex: Female

DRUGS (1)
  1. LYRICA [Suspect]
     Indication: FIBROMYALGIA
     Dosage: UNK
     Route: 048
     Dates: start: 20101201

REACTIONS (4)
  - VISION BLURRED [None]
  - EYE DISORDER [None]
  - OEDEMA PERIPHERAL [None]
  - LABORATORY TEST ABNORMAL [None]
